FAERS Safety Report 10736383 (Version 2)
Quarter: 2015Q1

REPORT INFORMATION
  Report Type: Spontaneous
  Country: DE (occurrence: None)
  Receive Date: 20150122
  Receipt Date: 20150204
  Transmission Date: 20150721
  Serious: Yes (Hospitalization, Other)
  Sender: FDA-Public Use
  Company Number: DE-2015VAL000045

PATIENT
  Sex: Male
  Weight: 2.9 kg

DRUGS (4)
  1. METOPROLOL TARTRATE (METOPROLOL TARTRATE) UNKNOWN [Suspect]
     Active Substance: METOPROLOL TARTRATE
     Indication: MATERNAL EXPOSURE DURING PREGNANCY
     Dosage: MATERNAL DOSE: 25MG, QD TRANSPLACENTAL
     Route: 064
  2. FOLIC ACID (FOLIC ACID) [Concomitant]
     Active Substance: FOLIC ACID
  3. DALTEPARIN SODIUM (DALTEPARIN SODIUM) [Concomitant]
  4. LEVOTHYROXINE SODIUM (LEVOTHYROXINE SODIUM)) [Concomitant]

REACTIONS (9)
  - Premature baby [None]
  - Neonatal hypotension [None]
  - Exposure during breast feeding [None]
  - Caesarean section [None]
  - Maternal drugs affecting foetus [None]
  - Temperature regulation disorder [None]
  - Foetal heart rate deceleration abnormality [None]
  - Macrocephaly [None]
  - Hypoglycaemia neonatal [None]
